FAERS Safety Report 6947048 (Version 4)
Quarter: 2020Q3

REPORT INFORMATION
  Report Type: Report from Study
  Country: US (occurrence: US)
  Receive Date: 20090320
  Receipt Date: 20090421
  Transmission Date: 20201104
  Serious: Yes (Other)
  Sender: FDA-Public Use
  Company Number: US-JNJFOC-20090304932

PATIENT
  Age: 12 Year
  Sex: Female
  Weight: 41 kg

DRUGS (20)
  1. CISAPRIDE [Suspect]
     Active Substance: CISAPRIDE
     Indication: GASTROOESOPHAGEAL REFLUX DISEASE
     Dosage: 200 ML BOTTLE, ROUTE? G?TUBE
     Route: 050
  2. ANTIVERT [Concomitant]
     Active Substance: MECLIZINE HYDROCHLORIDE
     Indication: VOMITING
     Route: 050
  3. KEFLEX [Concomitant]
     Active Substance: CEPHALEXIN
     Indication: NEUROGENIC BLADDER
     Route: 050
  4. ATARAX [Concomitant]
     Active Substance: HYDROXYZINE HYDROCHLORIDE
     Indication: SLEEP DISORDER
     Dosage: 125MG/5ML? 10ML
     Route: 065
  5. LORTAB [Concomitant]
     Active Substance: ACETAMINOPHEN\HYDROCODONE BITARTRATE
     Indication: PAIN
     Dosage: AS NEEDED
     Route: 065
  6. MOTRIN [Concomitant]
     Active Substance: IBUPROFEN
     Indication: PYREXIA
     Route: 050
  7. BENZYL ALCOHOL\SODIUM CHLORIDE [Concomitant]
     Indication: RHINORRHOEA
     Route: 045
  8. MULTI?VITAMIN [Concomitant]
     Active Substance: .ALPHA.-TOCOPHEROL ACETATE, DL-\ASCORBIC ACID\CYANOCOBALAMIN\FLUORIDE ION\FOLIC ACID\NIACIN\PYRIDOXINE\RIBOFLAVIN\THIAMINE\VITAMIN A\VITAMIN D
     Indication: VITAMIN SUPPLEMENTATION
     Route: 065
  9. CISAPRIDE [Suspect]
     Active Substance: CISAPRIDE
     Route: 050
  10. ANTIVERT [Concomitant]
     Active Substance: MECLIZINE HYDROCHLORIDE
     Indication: NAUSEA
     Dosage: AS NEEDED
     Route: 050
  11. VALIUM [Concomitant]
     Active Substance: DIAZEPAM
     Indication: MUSCLE SPASMS
     Route: 050
  12. LANSOPRAZOLE. [Concomitant]
     Active Substance: LANSOPRAZOLE
     Indication: ANTACID THERAPY
     Route: 065
  13. BACLOFEN. [Concomitant]
     Active Substance: BACLOFEN
     Indication: MUSCLE SPASMS
     Route: 050
  14. KEFLEX [Concomitant]
     Active Substance: CEPHALEXIN
     Indication: PROPHYLAXIS URINARY TRACT INFECTION
     Route: 050
  15. MOTRIN [Concomitant]
     Active Substance: IBUPROFEN
     Indication: PAIN
     Dosage: AS NEEDED
     Route: 050
  16. BACTROBAN [Concomitant]
     Active Substance: MUPIROCIN\MUPIROCIN CALCIUM
     Indication: PROPHYLAXIS
     Route: 065
  17. TYLENOL [Concomitant]
     Active Substance: ACETAMINOPHEN
     Indication: PYREXIA
     Route: 050
  18. DDAVP [Concomitant]
     Active Substance: DESMOPRESSIN ACETATE
     Indication: DIABETES INSIPIDUS
     Dosage: 0.1 AND 0.2 MG CRUSHED AND DISSOLVED PER G?TUBE, THREE TIMES DAILY.
     Route: 050
  19. TYLENOL [Concomitant]
     Active Substance: ACETAMINOPHEN
     Indication: PAIN
     Dosage: 4 TO 6 HOURLY AS NECESSARY
     Route: 050
  20. DEBROX [Concomitant]
     Indication: CERUMEN IMPACTION
     Route: 001

REACTIONS (1)
  - Electrocardiogram QT prolonged [Recovered/Resolved]

NARRATIVE: CASE EVENT DATE: 20090316
